APPROVED DRUG PRODUCT: JUBLIA
Active Ingredient: EFINACONAZOLE
Strength: 10%
Dosage Form/Route: SOLUTION;TOPICAL
Application: N203567 | Product #001 | TE Code: AB
Applicant: BAUSCH HEALTH AMERICAS INC
Approved: Jun 6, 2014 | RLD: Yes | RS: Yes | Type: RX

PATENTS:
Patent 7214506 | Expires: Feb 22, 2026
Patent 9566272 | Expires: Jan 3, 2028
Patent 9877955 | Expires: Jan 3, 2028
Patent 10512640 | Expires: Jan 3, 2028
Patent 10342875 | Expires: Oct 2, 2034
Patent 10478601 | Expires: Apr 25, 2035
Patent 11654139 | Expires: Oct 2, 2034
Patent 11213519 | Expires: Jan 3, 2028
Patent 10828293 | Expires: Oct 2, 2034
Patent 10864274 | Expires: Oct 2, 2034
Patent 11872218 | Expires: Jan 3, 2028
Patent 8039494 | Expires: Jul 8, 2030
Patent 9662394 | Expires: Oct 2, 2034
Patent 9861698 | Expires: Jul 8, 2030
Patent 8486978 | Expires: Oct 24, 2030
Patent 10828369 | Expires: Jan 3, 2028
Patent 10105444 | Expires: Jul 8, 2030
Patent 9302009 | Expires: Oct 24, 2030